FAERS Safety Report 22258876 (Version 3)
Quarter: 2023Q2

REPORT INFORMATION
  Report Type: Report from Study
  Country: US (occurrence: US)
  Receive Date: 20230427
  Receipt Date: 20230511
  Transmission Date: 20230722
  Serious: Yes (Other)
  Sender: FDA-Public Use
  Company Number: US-002147023-NVSC2023US093333

PATIENT
  Sex: Female
  Weight: 86.8 kg

DRUGS (9)
  1. COSENTYX [Suspect]
     Active Substance: SECUKINUMAB
     Indication: Psoriasis
     Dosage: 300 MG
     Route: 065
  2. COSENTYX [Suspect]
     Active Substance: SECUKINUMAB
     Indication: Hidradenitis
     Dosage: 150 MG
     Route: 065
  3. TRIAMCINOLONE ACETONIDE [Suspect]
     Active Substance: TRIAMCINOLONE ACETONIDE
     Indication: Psoriasis
     Dosage: 0.1 %
     Route: 065
  4. TRIAMCINOLONE ACETONIDE [Suspect]
     Active Substance: TRIAMCINOLONE ACETONIDE
     Indication: Hidradenitis
  5. METFORMIN HYDROCHLORIDE [Suspect]
     Active Substance: METFORMIN HYDROCHLORIDE
     Indication: Hidradenitis
     Dosage: 1000 MG
     Route: 048
  6. METRONIDAZOLE [Suspect]
     Active Substance: METRONIDAZOLE
     Indication: Hidradenitis
     Dosage: 500 MG
     Route: 048
  7. MOXIFLOXACIN [Suspect]
     Active Substance: MOXIFLOXACIN
     Indication: Hidradenitis
     Dosage: 400 MG
     Route: 048
  8. RIFAMPIN [Suspect]
     Active Substance: RIFAMPIN
     Indication: Hidradenitis
     Dosage: 300 MG
     Route: 048
  9. REMICADE [Suspect]
     Active Substance: INFLIXIMAB
     Indication: Hidradenitis
     Dosage: UNK
     Route: 065

REACTIONS (19)
  - Type 2 diabetes mellitus [Unknown]
  - Hidradenitis [Unknown]
  - Dermatitis contact [Unknown]
  - Iron deficiency anaemia [Unknown]
  - Essential hypertension [Unknown]
  - Abscess [Unknown]
  - Adverse event [Unknown]
  - Dermatitis atopic [Unknown]
  - Pigmentation disorder [Unknown]
  - Rash [Unknown]
  - Psoriasis [Unknown]
  - Tenderness [Unknown]
  - Pruritus [Unknown]
  - Pain of skin [Unknown]
  - Swelling [Unknown]
  - Skin lesion [Unknown]
  - Fistula [Unknown]
  - Product use in unapproved indication [Unknown]
  - Drug ineffective [Unknown]
